FAERS Safety Report 14737876 (Version 1)
Quarter: 2018Q2

REPORT INFORMATION
  Report Type: Spontaneous
  Country: US (occurrence: US)
  Receive Date: 20180409
  Receipt Date: 20180409
  Transmission Date: 20180711
  Serious: No
  Sender: FDA-Public Use
  Company Number: US-IPSEN BIOPHARMACEUTICALS, INC.-2018-02309

PATIENT
  Sex: Female

DRUGS (2)
  1. DYSPORT [Suspect]
     Active Substance: ABOBOTULINUMTOXINA
     Dosage: AROUND 200 UNITS
     Route: 065
     Dates: start: 2017, end: 2017
  2. DYSPORT [Suspect]
     Active Substance: ABOBOTULINUMTOXINA
     Indication: SKIN WRINKLING
     Dosage: NOT REPORTED
     Route: 065

REACTIONS (4)
  - Rash macular [Not Recovered/Not Resolved]
  - Overdose [Unknown]
  - Product storage error [Unknown]
  - Skin discolouration [Not Recovered/Not Resolved]
